FAERS Safety Report 15798984 (Version 2)
Quarter: 2019Q1

REPORT INFORMATION
  Report Type: Spontaneous
  Country: BE (occurrence: BE)
  Receive Date: 20190108
  Receipt Date: 20190307
  Transmission Date: 20190417
  Serious: Yes (Hospitalization, Other)
  Sender: FDA-Public Use
  Company Number: BE-ALLERGAN-1900557US

PATIENT
  Sex: Male
  Weight: 79 kg

DRUGS (7)
  1. MOXONIDINE [Concomitant]
     Active Substance: MOXONIDINE
     Dosage: UNK
     Dates: start: 20170620
  2. NEBIVOLOL HCL - BP [Suspect]
     Active Substance: NEBIVOLOL
     Indication: CARDIAC FAILURE
     Dosage: 3 MG, QD
     Route: 048
     Dates: start: 20181203, end: 20181219
  3. ASAFLOW [Concomitant]
     Active Substance: ASPIRIN
     Dosage: UNK
     Dates: start: 20130101, end: 20181218
  4. AMLODIPINE MALEATE [Concomitant]
     Active Substance: AMLODIPINE MALEATE
     Dosage: UNK
     Dates: start: 201501
  5. MOLSIDOMINE [Concomitant]
     Active Substance: MOLSIDOMINE
     Dosage: UNK
     Dates: start: 20150204, end: 20181218
  6. CLOPIDOGREL [Concomitant]
     Active Substance: CLOPIDOGREL BISULFATE
     Dosage: UNK
     Dates: start: 20180203, end: 20181218
  7. BUMETANIDE. [Suspect]
     Active Substance: BUMETANIDE
     Indication: PRODUCT USED FOR UNKNOWN INDICATION
     Dosage: 1 MG, QD
     Route: 048
     Dates: start: 201703

REACTIONS (3)
  - Angina pectoris [Recovered/Resolved]
  - Cardiac failure [Recovered/Resolved]
  - Acute kidney injury [Recovered/Resolved]

NARRATIVE: CASE EVENT DATE: 20181203
